FAERS Safety Report 4954656-5 (Version None)
Quarter: 2006Q1

REPORT INFORMATION
  Report Type: 
  Country: None (occurrence: None)
  Receive Date: 20060327
  Receipt Date: 20030527
  Transmission Date: 20060701
  Serious: Yes (Other)
  Sender: FDA-Public Use
  Company Number: HU-ROCHE-338988

PATIENT
  Age: 75 Year
  Sex: Female
  Weight: 88.5 kg

DRUGS (5)
  1. BONIVA [Suspect]
     Indication: OSTEOPOROSIS POSTMENOPAUSAL
     Dosage: DIVIDED OVER TWO CONSECUTIVE DAYS.
     Route: 048
     Dates: start: 20020822, end: 20030314
  2. PLACEBO [Suspect]
     Indication: OSTEOPOROSIS POSTMENOPAUSAL
     Dosage: TAKEN DAILY.
     Route: 048
     Dates: start: 20020822, end: 20030402
  3. PRAZOSIN [Concomitant]
     Dates: start: 19840615
  4. METOPROLOL [Concomitant]
     Dates: start: 19840615
  5. NIFEDIPINE [Concomitant]

REACTIONS (2)
  - ALANINE AMINOTRANSFERASE INCREASED [None]
  - LIVER DISORDER [None]
